FAERS Safety Report 14612919 (Version 1)
Quarter: 2018Q1

REPORT INFORMATION
  Report Type: Spontaneous
  Country: FR (occurrence: FR)
  Receive Date: 20180308
  Receipt Date: 20180308
  Transmission Date: 20180509
  Serious: Yes (Hospitalization)
  Sender: FDA-Public Use
  Company Number: FR-ASTRAZENECA-2018SE26454

PATIENT
  Age: 29 Year
  Sex: Female

DRUGS (2)
  1. INEXIUM [Suspect]
     Active Substance: ESOMEPRAZOLE
     Indication: PROPHYLAXIS AGAINST GASTROINTESTINAL ULCER
     Route: 048
     Dates: start: 20170316, end: 20170407
  2. VISIPAQUE [Suspect]
     Active Substance: IODIXANOL
     Indication: BARIUM SWALLOW
     Route: 048
     Dates: start: 20170317

REACTIONS (1)
  - Acute generalised exanthematous pustulosis [Recovered/Resolved]

NARRATIVE: CASE EVENT DATE: 20170323
